FAERS Safety Report 6142490-2 (Version None)
Quarter: 2009Q2

REPORT INFORMATION
  Report Type: 
  Country: None (occurrence: None)
  Receive Date: 20090402
  Receipt Date: 20090402
  Transmission Date: 20091009
  Serious: Yes (Hospitalization)
  Sender: FDA-Public Use
  Company Number: None

PATIENT
  Sex: Male
  Weight: 95.709 kg

DRUGS (2)
  1. IFOSFAMIDE 50 MG/ML SICOR [Suspect]
     Indication: LYMPHOMA
     Dosage: 10 MG X 1 IV
     Route: 042
     Dates: start: 20090318, end: 20090318
  2. MESNA [Suspect]
     Dosage: 10,550 MG X 1 IV
     Route: 042
     Dates: start: 20090318, end: 20090318

REACTIONS (5)
  - CONSTIPATION [None]
  - DECREASED APPETITE [None]
  - PANCREATITIS [None]
  - WEIGHT DECREASED [None]
  - WHITE BLOOD CELL COUNT DECREASED [None]
